FAERS Safety Report 23653272 (Version 2)
Quarter: 2024Q3

REPORT INFORMATION
  Report Type: Spontaneous
  Country: US (occurrence: US)
  Receive Date: 20240320
  Receipt Date: 20240902
  Transmission Date: 20241017
  Serious: Yes (Death)
  Sender: PFIZER
  Company Number: US-PFIZER INC-PV202300144165

PATIENT
  Age: 68 Year
  Sex: Male

DRUGS (3)
  1. BOSULIF [Suspect]
     Active Substance: BOSUTINIB MONOHYDRATE
     Indication: Chronic myeloid leukaemia
     Dosage: TAKE TWO TABLETS (200 MG) BY MOUTH EVERY DAY AT THE SAME TIME AND WITH FOOD
     Route: 048
  2. BOSULIF [Suspect]
     Active Substance: BOSUTINIB MONOHYDRATE
     Dosage: 100 MG
  3. BOSULIF [Suspect]
     Active Substance: BOSUTINIB MONOHYDRATE
     Dosage: 100MG TABLETS 2X DAILY

REACTIONS (1)
  - Death [Fatal]

NARRATIVE: CASE EVENT DATE: 20240201
